FAERS Safety Report 4376563-1 (Version None)
Quarter: 2004Q2

REPORT INFORMATION
  Report Type: 
  Country: None (occurrence: None)
  Receive Date: 20040614
  Receipt Date: 20040603
  Transmission Date: 20050107
  Serious: Yes (Hospitalization)
  Sender: FDA-Public Use
  Company Number: US-BRISTOL-MYERS SQUIBB COMPANY-12605358

PATIENT
  Age: 72 Year
  Sex: Female
  Weight: 59 kg

DRUGS (7)
  1. PRAVACHOL [Suspect]
     Indication: BLOOD CHOLESTEROL INCREASED
     Dosage: RECENTLY INCREASED TO 80 MG/DAY
     Route: 048
  2. ATENOLOL [Concomitant]
  3. NORVASC [Concomitant]
  4. LEVOXYL [Concomitant]
  5. NITROGLYCERIN [Concomitant]
  6. ASPIRIN [Concomitant]
  7. IMIPRAMINE [Concomitant]
     Dosage: 2-5 TIMES DAILY

REACTIONS (3)
  - BLADDER DISORDER [None]
  - BLOOD CHOLESTEROL INCREASED [None]
  - PNEUMONIA [None]
